FAERS Safety Report 9736330 (Version 1)
Quarter: 2013Q4

REPORT INFORMATION
  Report Type: Spontaneous
  Country: US (occurrence: None)
  Receive Date: 20131204
  Receipt Date: 20131204
  Transmission Date: 20140711
  Serious: Yes (Death)
  Sender: FDA-Public Use
  Company Number: US-ALKEM-000300

PATIENT
  Age: 57 Year
  Sex: Female

DRUGS (11)
  1. GABAPENTIN [Suspect]
     Dosage: ORAL
     Route: 048
  2. BROMPHENIRAMINE [Suspect]
     Dosage: ORAL
     Route: 048
  3. ACETAMINOPHEN [Suspect]
     Route: 048
  4. CITALOPRAM [Suspect]
     Route: 048
  5. OXYCODONE [Suspect]
     Route: 048
  6. ATENOLOL [Suspect]
     Route: 048
  7. CELECOXIB [Suspect]
     Route: 048
  8. ACETAMINOPHEN W/HYDROCODONE [Suspect]
     Route: 048
  9. HYDROMORPHONE [Suspect]
     Route: 048
  10. CLONAZEPAM [Suspect]
     Route: 048
  11. IBUPROFEN [Suspect]
     Route: 048

REACTIONS (4)
  - Overdose [None]
  - Completed suicide [None]
  - Cardio-respiratory arrest [None]
  - Exposure via ingestion [None]
